FAERS Safety Report 23945396 (Version 1)
Quarter: 2024Q2

REPORT INFORMATION
  Report Type: Spontaneous
  Country: US (occurrence: US)
  Receive Date: 20240606
  Receipt Date: 20240606
  Transmission Date: 20240716
  Serious: No
  Sender: FDA-Public Use
  Company Number: US-AUROBINDO-AUR-APL-2024-011973

PATIENT
  Sex: Female

DRUGS (1)
  1. PREDNISONE [Suspect]
     Active Substance: PREDNISONE
     Indication: Product used for unknown indication
     Dosage: 4 MILLIGRAM, DAILY
     Route: 065
     Dates: start: 20240220

REACTIONS (5)
  - Blood pressure increased [Unknown]
  - Energy increased [Unknown]
  - Heart rate increased [Unknown]
  - Product colour issue [Unknown]
  - Product label issue [Unknown]

NARRATIVE: CASE EVENT DATE: 20240220
